FAERS Safety Report 19724098 (Version 2)
Quarter: 2021Q3

REPORT INFORMATION
  Report Type: Report from Study
  Country: BR (occurrence: BR)
  Receive Date: 20210819
  Receipt Date: 20210917
  Transmission Date: 20211014
  Serious: Yes (Life-Threatening, Other)
  Sender: FDA-Public Use
  Company Number: NVSC2021BR187662

PATIENT
  Age: 48 Year
  Sex: Male

DRUGS (5)
  1. COSENTYX [Suspect]
     Active Substance: SECUKINUMAB
     Dosage: 150 MG, QMO
     Route: 065
  2. COSENTYX [Suspect]
     Active Substance: SECUKINUMAB
     Dosage: 150 MG, QMO
     Route: 065
     Dates: start: 20210716
  3. SIMVASTATIN. [Suspect]
     Active Substance: SIMVASTATIN
     Indication: BLOOD CHOLESTEROL ABNORMAL
     Dosage: UNK
     Route: 065
  4. COSENTYX [Suspect]
     Active Substance: SECUKINUMAB
     Indication: ANKYLOSING SPONDYLITIS
     Dosage: 150 MG, QW (ATTACK DOSES 0,1,2,3,4)
     Route: 065
     Dates: start: 20190531
  5. COSENTYX [Suspect]
     Active Substance: SECUKINUMAB
     Dosage: 150 MG, QMO
     Route: 065
     Dates: start: 202108

REACTIONS (28)
  - Pain [Unknown]
  - Blood cholesterol abnormal [Not Recovered/Not Resolved]
  - Arthralgia [Unknown]
  - Back pain [Unknown]
  - Musculoskeletal stiffness [Unknown]
  - Head injury [Recovering/Resolving]
  - Fall [Recovering/Resolving]
  - Pain in extremity [Recovering/Resolving]
  - Chest pain [Unknown]
  - Heart rate abnormal [Not Recovered/Not Resolved]
  - Emotional disorder [Unknown]
  - Influenza [Unknown]
  - Palpitations [Unknown]
  - Swelling [Recovering/Resolving]
  - Agitation [Unknown]
  - Sneezing [Unknown]
  - Dysstasia [Unknown]
  - Irritability [Unknown]
  - Feeling abnormal [Unknown]
  - Syncope [Recovered/Resolved]
  - Memory impairment [Unknown]
  - Malaise [Unknown]
  - Cardiac valve disease [Unknown]
  - Anxiety [Not Recovered/Not Resolved]
  - Mass [Recovered/Resolved]
  - Arrhythmia [Not Recovered/Not Resolved]
  - Depression [Unknown]
  - Limb injury [Unknown]

NARRATIVE: CASE EVENT DATE: 202107
